FAERS Safety Report 7752443-6 (Version None)
Quarter: 2011Q3

REPORT INFORMATION
  Report Type: 
  Country: None (occurrence: None)
  Receive Date: 20110915
  Receipt Date: 20110909
  Transmission Date: 20111222
  Serious: Yes (Other)
  Sender: FDA-Public Use
  Company Number: PHHY2011CH57296

PATIENT
  Age: 59 Year
  Sex: Female

DRUGS (1)
  1. ZOLEDRONOC ACID [Suspect]
     Indication: OSTEOPOROSIS POSTMENOPAUSAL
     Dosage: 5 MG, UNK
     Route: 042
     Dates: start: 20110606, end: 20110606

REACTIONS (13)
  - HEADACHE [None]
  - DYSKINESIA [None]
  - MUSCULOSKELETAL STIFFNESS [None]
  - ARTHRALGIA [None]
  - PAIN [None]
  - DYSPNOEA [None]
  - JOINT STIFFNESS [None]
  - FATIGUE [None]
  - CHEST DISCOMFORT [None]
  - CHEST PAIN [None]
  - FEELING ABNORMAL [None]
  - PARALYSIS [None]
  - FORMICATION [None]
